FAERS Safety Report 17131330 (Version 2)
Quarter: 2019Q4

REPORT INFORMATION
  Report Type: Report from Study
  Country: None (occurrence: US)
  Receive Date: 20191209
  Receipt Date: 20191226
  Transmission Date: 20200122
  Serious: Yes (Other)
  Sender: FDA-Public Use
  Company Number: US-ABBVIE-19K-163-3167763-00

PATIENT
  Age: 72 Year
  Sex: Female

DRUGS (3)
  1. IMBRUVICA [Suspect]
     Active Substance: IBRUTINIB
     Dosage: UNK
     Route: 048
     Dates: end: 20191114
  2. IMBRUVICA [Suspect]
     Active Substance: IBRUTINIB
     Indication: CHRONIC LYMPHOCYTIC LEUKAEMIA
     Dosage: UNK
     Route: 065
     Dates: start: 2014, end: 20191114
  3. CALQUENCE [Suspect]
     Active Substance: ACALABRUTINIB
     Indication: CHRONIC LYMPHOCYTIC LEUKAEMIA
     Dosage: 100 MG, BID
     Route: 048
     Dates: start: 20191115

REACTIONS (19)
  - Nail disorder [Unknown]
  - Anaemia [Unknown]
  - Macular degeneration [Unknown]
  - Hepatic enzyme increased [Unknown]
  - Alopecia [Unknown]
  - Loss of consciousness [Recovered/Resolved]
  - Blood glucose increased [Unknown]
  - Hot flush [Not Recovered/Not Resolved]
  - Night sweats [Not Recovered/Not Resolved]
  - Pollakiuria [Unknown]
  - Haemorrhage [Unknown]
  - Tremor [Unknown]
  - Unevaluable event [Unknown]
  - Glycosylated haemoglobin decreased [Recovering/Resolving]
  - Cystitis [Not Recovered/Not Resolved]
  - Sinusitis [Not Recovered/Not Resolved]
  - Palpitations [Recovering/Resolving]
  - Headache [Unknown]
  - Back pain [Unknown]

NARRATIVE: CASE EVENT DATE: 20191215
